FAERS Safety Report 14552303 (Version 2)
Quarter: 2024Q1

REPORT INFORMATION
  Report Type: Spontaneous
  Country: US (occurrence: US)
  Receive Date: 20180220
  Receipt Date: 20240109
  Transmission Date: 20240410
  Serious: Yes (Death, Hospitalization, Other)
  Sender: FDA-Public Use
  Company Number: US-AUROBINDO-AUR-APL-2018-005893

PATIENT
  Age: 27 Year
  Sex: Male

DRUGS (5)
  1. ABACAVIR [Suspect]
     Active Substance: ABACAVIR
     Indication: Kaposi^s sarcoma
     Dosage: UNK
     Route: 065
  2. LAMIVUDINE [Suspect]
     Active Substance: LAMIVUDINE
     Indication: Kaposi^s sarcoma
     Dosage: UNK
     Route: 065
  3. DARUNAVIR [Suspect]
     Active Substance: DARUNAVIR
     Indication: Kaposi^s sarcoma
     Dosage: UNK
     Route: 065
  4. RITONAVIR [Suspect]
     Active Substance: RITONAVIR
     Indication: Kaposi^s sarcoma
     Dosage: UNK
     Route: 065
  5. AMPHOTERICIN B [Concomitant]
     Active Substance: AMPHOTERICIN B
     Indication: Coccidioidomycosis
     Dosage: UNK
     Route: 065

REACTIONS (6)
  - Coccidioidomycosis [Fatal]
  - Immune reconstitution inflammatory syndrome [Fatal]
  - Kaposi^s sarcoma [Fatal]
  - Condition aggravated [Fatal]
  - Respiratory failure [Unknown]
  - Infection [Fatal]

NARRATIVE: CASE EVENT DATE: 20150101
